FAERS Safety Report 9054217 (Version 1)
Quarter: 2013Q1

REPORT INFORMATION
  Report Type: Spontaneous
  Country: US (occurrence: US)
  Receive Date: 20130208
  Receipt Date: 20130208
  Transmission Date: 20140127
  Serious: Yes (Hospitalization)
  Sender: FDA-Public Use
  Company Number: US-SANOFI-AVENTIS-2013SA007870

PATIENT
  Age: 58 Year
  Sex: Female

DRUGS (11)
  1. PLAVIX [Suspect]
     Route: 048
  2. NOVOLIN R [Concomitant]
     Dosage: DOSE - 100 IU/UNITS
  3. LANTUS [Concomitant]
     Dosage: DOSE - 100 IU/UNITS
  4. ASPIRIN [Concomitant]
     Dosage: DOSE - } 100 MG
     Dates: start: 20110812
  5. ASPIRIN [Concomitant]
     Dosage: DOSE  }100 MG
     Dates: start: 20110124
  6. ASPIRIN [Concomitant]
     Dosage: DOSE } 100 MG
     Dates: start: 20111020
  7. ASPIRIN [Concomitant]
     Dosage: DOSE } 100 MG
     Dates: start: 20120127
  8. ASPIRIN [Concomitant]
     Dosage: DOSE ={ 100 MG AND } 100 MG
     Dates: start: 20130117
  9. TRIMETAZIDINE [Concomitant]
  10. RANOLAZINE [Concomitant]
  11. CORONARY VASODILATORS [Concomitant]

REACTIONS (1)
  - Dysfunctional uterine bleeding [Recovered/Resolved]
